FAERS Safety Report 14677917 (Version 1)
Quarter: 2018Q1

REPORT INFORMATION
  Report Type: Report from Study
  Country: None (occurrence: TN)
  Receive Date: 20180326
  Receipt Date: 20180326
  Transmission Date: 20180509
  Serious: Yes (Other)
  Sender: FDA-Public Use
  Company Number: TN-ABBVIE-18K-160-2271690-00

PATIENT
  Age: 49 Year
  Sex: Female
  Weight: 74 kg

DRUGS (4)
  1. HUMIRA [Suspect]
     Active Substance: ADALIMUMAB
     Route: 058
  2. HUMIRA [Suspect]
     Active Substance: ADALIMUMAB
     Indication: CROHN^S DISEASE
     Route: 058
  3. HUMIRA [Suspect]
     Active Substance: ADALIMUMAB
     Route: 058
     Dates: start: 2014, end: 201712
  4. HUMIRA [Suspect]
     Active Substance: ADALIMUMAB
     Route: 058
     Dates: start: 20180109

REACTIONS (5)
  - Cataract [Recovered/Resolved]
  - Weight decreased [Unknown]
  - Chalazion [Recovered/Resolved]
  - Gastrointestinal pain [Recovered/Resolved]
  - Abdominal discomfort [Recovered/Resolved]

NARRATIVE: CASE EVENT DATE: 201702
